FAERS Safety Report 15744827 (Version 1)
Quarter: 2018Q4

REPORT INFORMATION
  Report Type: Spontaneous
  Country: US (occurrence: US)
  Receive Date: 20181220
  Receipt Date: 20181220
  Transmission Date: 20190205
  Serious: Yes (Other)
  Sender: FDA-Public Use
  Company Number: None

PATIENT
  Age: 32 Year
  Sex: Female
  Weight: 93.15 kg

DRUGS (2)
  1. BUPIVACAINE SPINAL [Suspect]
     Active Substance: BUPIVACAINE
     Indication: CAESAREAN SECTION
     Route: 037
     Dates: start: 20181217
  2. BUPIVACAINE SPINAL [Suspect]
     Active Substance: BUPIVACAINE
     Indication: SPINAL ANAESTHESIA
     Route: 037
     Dates: start: 20181217

REACTIONS (2)
  - Treatment failure [None]
  - Anaesthetic complication [None]

NARRATIVE: CASE EVENT DATE: 20181217
